FAERS Safety Report 17190075 (Version 1)
Quarter: 2019Q4

REPORT INFORMATION
  Report Type: Spontaneous
  Country: US (occurrence: US)
  Receive Date: 20191223
  Receipt Date: 20191223
  Transmission Date: 20200122
  Serious: Yes (Other)
  Sender: FDA-Public Use
  Company Number: US-009507513-1912USA008988

PATIENT
  Age: 77 Year
  Sex: Male
  Weight: 83.9 kg

DRUGS (5)
  1. ROPINIROLE. [Concomitant]
     Active Substance: ROPINIROLE
     Dosage: UNK
  2. LEVODOPA [Suspect]
     Active Substance: LEVODOPA
     Indication: ON AND OFF PHENOMENON
  3. SINEMET [Suspect]
     Active Substance: CARBIDOPA\LEVODOPA
     Dosage: UNK
     Route: 048
  4. PROPRANOLOL [Concomitant]
     Active Substance: PROPRANOLOL HYDROCHLORIDE
     Dosage: UNK, QID
  5. LEVODOPA [Suspect]
     Active Substance: LEVODOPA
     Indication: PARKINSON^S DISEASE
     Dosage: 84 MILLIGRAM, PM (UP TO 5 TIMES A DAY), 2 CAPSULES IN THE MORNING FOR AN OFF PERIOD AND IN THE AFTER
     Dates: start: 20191113

REACTIONS (7)
  - Pain in extremity [Not Recovered/Not Resolved]
  - Chest pain [Unknown]
  - Parkinson^s disease [Not Recovered/Not Resolved]
  - Therapeutic response shortened [Unknown]
  - Muscle spasms [Not Recovered/Not Resolved]
  - Musculoskeletal pain [Not Recovered/Not Resolved]
  - Abdominal pain [Unknown]

NARRATIVE: CASE EVENT DATE: 20191122
